FAERS Safety Report 7559797-4 (Version None)
Quarter: 2011Q2

REPORT INFORMATION
  Report Type: 
  Country: None (occurrence: None)
  Receive Date: 20110621
  Receipt Date: 20110616
  Transmission Date: 20111010
  Serious: Yes (Other)
  Sender: FDA-Public Use
  Company Number: SK-ROCHE-782929

PATIENT
  Sex: Female

DRUGS (2)
  1. BONIVA [Suspect]
     Dosage: NEXT DOSE DELAYED
     Route: 042
     Dates: start: 20110406
  2. BONIVA [Suspect]
     Indication: OSTEOPOROSIS
     Route: 042
     Dates: start: 20110101

REACTIONS (1)
  - HAEMATOMA [None]
